FAERS Safety Report 6396732-9 (Version None)
Quarter: 2009Q4

REPORT INFORMATION
  Report Type: 
  Country: None (occurrence: None)
  Receive Date: 20091012
  Receipt Date: 20090511
  Transmission Date: 20100525
  Serious: No
  Sender: FDA-Public Use
  Company Number: US-ASTRAZENECA-2009UW12173

PATIENT
  Age: 964 Month
  Sex: Female
  Weight: 77.1 kg

DRUGS (5)
  1. SYMBICORT [Suspect]
     Indication: BRONCHITIS
     Dosage: 80/4.5 UG, 2 PUFFS
     Route: 055
  2. SYMBICORT [Suspect]
     Indication: COUGH
     Dosage: 80/4.5 UG, 2 PUFFS
     Route: 055
  3. HYZAAR [Concomitant]
  4. LEVOTHYROXINE [Concomitant]
  5. CELEBREX [Concomitant]

REACTIONS (3)
  - DYSGEUSIA [None]
  - HEADACHE [None]
  - PAROSMIA [None]
